FAERS Safety Report 25018691 (Version 1)
Quarter: 2025Q1

REPORT INFORMATION
  Report Type: Spontaneous
  Country: US (occurrence: US)
  Receive Date: 20250227
  Receipt Date: 20250227
  Transmission Date: 20250409
  Serious: No
  Sender: AVADEL CNS PHARMACEUTICALS, LLC
  Company Number: US-AVADEL CNS PHARMACEUTICALS, LLC-2024AVA02381

PATIENT
  Sex: Male

DRUGS (6)
  1. LUMRYZ [Suspect]
     Active Substance: SODIUM OXYBATE
     Indication: Narcolepsy
     Dosage: 4.5 G, ONCE NIGHTLY
     Route: 048
     Dates: start: 202411
  2. LUMRYZ [Suspect]
     Active Substance: SODIUM OXYBATE
     Indication: Cataplexy
  3. ARMODAFINIL [Concomitant]
     Active Substance: ARMODAFINIL
  4. FLU SYRINGE [Concomitant]
     Dates: start: 2024
  5. UNSPECIFIED PROTIEN SHAKES [Concomitant]
  6. MUCINEX SINUS MAX SEVERE CONGESTION RELIEF [DEXTROMETHORPHAN HYDROBROM [Concomitant]
     Dates: start: 20241212

REACTIONS (11)
  - Terminal insomnia [Not Recovered/Not Resolved]
  - Insomnia [Recovered/Resolved]
  - Middle insomnia [Not Recovered/Not Resolved]
  - Myoclonus [Not Recovered/Not Resolved]
  - Skin odour abnormal [Not Recovered/Not Resolved]
  - Abnormal sleep-related event [Unknown]
  - Palpitations [Unknown]
  - Peripheral swelling [Recovering/Resolving]
  - Unevaluable event [Unknown]
  - Somnolence [Not Recovered/Not Resolved]
  - Therapeutic product effect incomplete [Not Recovered/Not Resolved]

NARRATIVE: CASE EVENT DATE: 20240101
